FAERS Safety Report 5048510-0 (Version None)
Quarter: 2006Q3

REPORT INFORMATION
  Report Type: 
  Country: None (occurrence: None)
  Receive Date: 20060705
  Receipt Date: 20060612
  Transmission Date: 20061208
  Serious: No
  Sender: FDA-Public Use
  Company Number: AT200606003022

PATIENT
  Age: 18 Year
  Sex: Female

DRUGS (1)
  1. ZYPREXA [Suspect]
     Dosage: 10 MG, ORAL
     Route: 048
     Dates: start: 20060123, end: 20060123

REACTIONS (1)
  - LEUKOPENIA [None]
